FAERS Safety Report 9705684 (Version 2)
Quarter: 2013Q4

REPORT INFORMATION
  Report Type: Spontaneous
  Country: US (occurrence: US)
  Receive Date: 20131122
  Receipt Date: 20131122
  Transmission Date: 20140711
  Serious: Yes (Other)
  Sender: FDA-Public Use
  Company Number: US-GILEAD-2008-0017108

PATIENT
  Age: 68 Year
  Sex: Female

DRUGS (7)
  1. LETAIRIS [Suspect]
     Indication: PULMONARY ARTERIAL HYPERTENSION
     Route: 048
     Dates: start: 20080605
  2. PRILOSEC [Concomitant]
     Route: 048
  3. NIFEDIPINE [Concomitant]
     Route: 048
  4. TYLENOL [Concomitant]
     Dosage: PRN
     Route: 048
  5. MIRALAX [Concomitant]
     Route: 048
  6. TUMS [Concomitant]
     Dosage: PRN
     Route: 048
  7. METOCLOPRAMIDE [Concomitant]
     Route: 048

REACTIONS (1)
  - Local swelling [Not Recovered/Not Resolved]
